FAERS Safety Report 25418684 (Version 1)
Quarter: 2025Q2

REPORT INFORMATION
  Report Type: Spontaneous
  Country: US (occurrence: US)
  Receive Date: 20250610
  Receipt Date: 20250610
  Transmission Date: 20250717
  Serious: Yes (Life-Threatening, Hospitalization)
  Sender: AMGEN
  Company Number: US-AMGEN-USASP2025111224

PATIENT

DRUGS (2)
  1. RITUXIMAB [Suspect]
     Active Substance: RITUXIMAB
     Indication: Lung transplant
     Route: 065
  2. Immunoglobulin [Concomitant]
     Route: 040

REACTIONS (3)
  - Transplant dysfunction [Unknown]
  - Lung transplant rejection [Unknown]
  - Off label use [Unknown]
